FAERS Safety Report 4480680-5 (Version None)
Quarter: 2004Q4

REPORT INFORMATION
  Report Type: 
  Country: None (occurrence: None)
  Receive Date: 20041019
  Receipt Date: 20041004
  Transmission Date: 20050328
  Serious: Yes (Hospitalization)
  Sender: FDA-Public Use
  Company Number: 2004-SW-00313SW

PATIENT
  Age: 66 Year
  Sex: Male

DRUGS (10)
  1. SIFROL TAB. 1.1 MG (PRAMIPEXOLE DIHYDROCHLORIDE) (TA) [Suspect]
     Indication: PARKINSON'S DISEASE
     Dosage: 3.3 MG (1.1 MG, PO; LONG TERM TREATMENT
     Route: 048
  2. MADOPARK (MADOPAR) (TA) [Suspect]
     Indication: PARKINSON'S DISEASE
     Dosage: 6 ANZ, PO; (LONG-TERM TREATMENT)
     Route: 048
  3. MADOPARK QUICK (MADOPAR) (TA) [Suspect]
     Indication: PARKINSON'S DISEASE
     Dosage: 3 ANZ, PO (LONG-TERM TREATMENT)
     Route: 048
  4. TASMAR (TOLCAPONE) [Concomitant]
     Indication: PARKINSON'S DISEASE
     Dosage: 100 MG (100 MG), PO (LONG-TERM TREATMENT)
     Route: 048
     Dates: start: 20031007
  5. EFFEXOR [Concomitant]
  6. EGAZIL DURETER (HYOSCYAMINE SULFATE) [Concomitant]
  7. BETOLVEX (CYANOCOBALAMIN-TANNIN COMPLEX) [Concomitant]
  8. CLARITIN [Concomitant]
  9. ASPIRIN [Concomitant]
  10. DETRUSITOL (TOLTERODINE L-TARTRATE) [Concomitant]

REACTIONS (6)
  - COMPUTERISED TOMOGRAM THORAX ABNORMAL [None]
  - DYSPNOEA EXERTIONAL [None]
  - FATIGUE [None]
  - PLEURAL FIBROSIS [None]
  - PULMONARY FIBROSIS [None]
  - WEIGHT DECREASED [None]
